FAERS Safety Report 21357995 (Version 1)
Quarter: 2022Q3

REPORT INFORMATION
  Report Type: Spontaneous
  Country: DK (occurrence: DK)
  Receive Date: 20220921
  Receipt Date: 20220921
  Transmission Date: 20221026
  Serious: Yes (Disabling)
  Sender: FDA-Public Use
  Company Number: None

PATIENT
  Age: 56 Year
  Sex: Male

DRUGS (1)
  1. ISOTRETINOIN [Suspect]
     Active Substance: ISOTRETINOIN
     Indication: Acne
     Dosage: STRENGTH: 20 MG  , UNIT DOSE : 20 MG , FREQUENCY TIME : 1 DAY , DURATION : 64 DAYS
     Dates: start: 20191022, end: 20191225

REACTIONS (8)
  - Haemochromatosis [Recovered/Resolved]
  - Night blindness [Unknown]
  - Tunnel vision [Not Recovered/Not Resolved]
  - Visual impairment [Not Recovered/Not Resolved]
  - Lip dry [Unknown]
  - Colour blindness [Unknown]
  - Dry skin [Unknown]
  - Ocular hypertension [Recovered/Resolved]

NARRATIVE: CASE EVENT DATE: 20191101
